FAERS Safety Report 9457652 (Version 1)
Quarter: 2013Q3

REPORT INFORMATION
  Report Type: Spontaneous
  Country: US (occurrence: US)
  Receive Date: 20130814
  Receipt Date: 20130814
  Transmission Date: 20140515
  Serious: No
  Sender: FDA-Public Use
  Company Number: US-PFIZER INC-2013234737

PATIENT
  Age: 76 Year
  Sex: Female

DRUGS (3)
  1. LYRICA [Suspect]
     Dosage: 50 MG, 3X/DAY
     Route: 048
  2. CODEINE [Suspect]
     Dosage: UNK
  3. ASA [Suspect]
     Dosage: 81 MG, (Q AM)

REACTIONS (2)
  - Drug hypersensitivity [Unknown]
  - Nausea [Unknown]
